FAERS Safety Report 4425001-9 (Version None)
Quarter: 2004Q3

REPORT INFORMATION
  Report Type: 
  Country: None (occurrence: None)
  Receive Date: 20040811
  Receipt Date: 20040811
  Transmission Date: 20050211
  Serious: Yes (Hospitalization)
  Sender: FDA-Public Use
  Company Number: None

PATIENT
  Age: 67 Year
  Sex: Female
  Weight: 74.8 kg

DRUGS (5)
  1. BACTRIM [Suspect]
     Indication: URINARY TRACT INFECTION
     Dosage: ORAL
     Route: 048
     Dates: start: 20040311, end: 20040311
  2. BENADRYL [Concomitant]
  3. MEDROL [Concomitant]
  4. CIPRO [Concomitant]
  5. GLUCOPHAGE [Concomitant]

REACTIONS (3)
  - HYPERSENSITIVITY [None]
  - LUPUS-LIKE SYNDROME [None]
  - TROPONIN INCREASED [None]
